FAERS Safety Report 25627558 (Version 1)
Quarter: 2025Q3

REPORT INFORMATION
  Report Type: Spontaneous
  Country: US (occurrence: None)
  Receive Date: 20250730
  Receipt Date: 20250730
  Transmission Date: 20251021
  Serious: Yes (Hospitalization, Other)
  Sender: FDA-CTU
  Company Number: None

PATIENT
  Age: 60 Year
  Sex: Male
  Weight: 90 kg

DRUGS (2)
  1. OMNIPAQUE [Suspect]
     Active Substance: IOHEXOL
     Indication: Lumbar radiculopathy
     Route: 008
     Dates: start: 20250617, end: 20250617
  2. OMNIPAQUE [Suspect]
     Active Substance: IOHEXOL
     Indication: Spinal stenosis

REACTIONS (5)
  - Cauda equina syndrome [None]
  - Post procedural complication [None]
  - Iatrogenic injury [None]
  - Intervertebral discitis [None]
  - Osteomyelitis [None]

NARRATIVE: CASE EVENT DATE: 20250617
